FAERS Safety Report 8577668-1 (Version None)
Quarter: 2012Q3

REPORT INFORMATION
  Report Type: 
  Country: None (occurrence: None)
  Receive Date: 20120807
  Receipt Date: 20120731
  Transmission Date: 20120928
  Serious: Yes (Life-Threatening, Hospitalization, Other)
  Sender: FDA-Public Use
  Company Number: BR-ROCHE-1097547

PATIENT
  Sex: Female

DRUGS (1)
  1. XOLAIR [Suspect]
     Indication: PRODUCT USED FOR UNKNOWN INDICATION
     Dates: start: 20120401

REACTIONS (6)
  - DIABETES MELLITUS [None]
  - BONE DISORDER [None]
  - COMA [None]
  - GENERALISED OEDEMA [None]
  - HYPERTENSION [None]
  - DYSPNOEA [None]
